FAERS Safety Report 24230177 (Version 3)
Quarter: 2024Q3

REPORT INFORMATION
  Report Type: Report from Study
  Country: CA (occurrence: CA)
  Receive Date: 20240820
  Receipt Date: 20240923
  Transmission Date: 20241017
  Serious: Yes (Other)
  Sender: SANDOZ
  Company Number: CA-SANDOZ-SDZ2024CA044531

PATIENT
  Sex: Female

DRUGS (2)
  1. ERELZI [Suspect]
     Active Substance: ETANERCEPT-SZZS
     Indication: Rheumatoid arthritis
     Dosage: 50 MG, QW, ERELZI (PRE-FILLED PEN))
     Route: 058
     Dates: start: 20240418
  2. CELEBREX [Concomitant]
     Active Substance: CELECOXIB
     Indication: Product used for unknown indication
     Dosage: UNKNOWN
     Route: 065

REACTIONS (10)
  - Rheumatoid arthritis [Unknown]
  - Heart rate abnormal [Unknown]
  - Dizziness [Unknown]
  - Dyspnoea [Unknown]
  - Injection site discharge [Unknown]
  - Alopecia [Unknown]
  - Nasopharyngitis [Unknown]
  - Injection site pain [Unknown]
  - Injection site bruising [Unknown]
  - Therapy interrupted [Unknown]
